FAERS Safety Report 7955135-3 (Version None)
Quarter: 2011Q4

REPORT INFORMATION
  Report Type: 
  Country: None (occurrence: None)
  Receive Date: 20111202
  Receipt Date: 20111123
  Transmission Date: 20120403
  Serious: Yes (Other)
  Sender: FDA-Public Use
  Company Number: US-JNJFOC-20111111384

PATIENT
  Sex: Male
  Weight: 113.4 kg

DRUGS (11)
  1. REMICADE [Suspect]
     Route: 042
     Dates: start: 20110101, end: 20110101
  2. KLOR-CON [Concomitant]
     Indication: MEDICAL DIET
     Route: 048
  3. REMICADE [Suspect]
     Indication: CROHN'S DISEASE
     Route: 042
     Dates: start: 20090901, end: 20110101
  4. CARDURA [Concomitant]
     Indication: HYPERTENSION
     Route: 048
  5. XANAX [Concomitant]
     Indication: DEPRESSION
     Route: 048
  6. VERAPAMIL [Concomitant]
     Indication: HYPERTENSION
     Route: 048
  7. OMEPRAZOLE [Concomitant]
     Indication: GASTROOESOPHAGEAL REFLUX DISEASE
     Route: 048
     Dates: start: 20090101
  8. REMICADE [Suspect]
     Route: 042
     Dates: start: 20110101
  9. WELLBUTRIN [Concomitant]
     Indication: DEPRESSION
     Route: 048
     Dates: start: 20030101
  10. DYAZIDE [Concomitant]
     Indication: DIURETIC THERAPY
     Route: 048
  11. PAMELOR [Concomitant]
     Indication: DEPRESSION
     Route: 048

REACTIONS (3)
  - PLATELET COUNT DECREASED [None]
  - ANAL FISTULA [None]
  - HEADACHE [None]
